FAERS Safety Report 6620275-8 (Version None)
Quarter: 2010Q1

REPORT INFORMATION
  Report Type: 
  Country: None (occurrence: None)
  Receive Date: 20100304
  Receipt Date: 20100222
  Transmission Date: 20100710
  Serious: Yes (Other)
  Sender: FDA-Public Use
  Company Number: 2010US000577

PATIENT
  Age: 77 Year
  Sex: Female

DRUGS (1)
  1. VESICARE [Suspect]
     Indication: BLADDER DISORDER
     Dosage: 5 MG, UID/QD, ORAL
     Route: 048
     Dates: start: 20100201

REACTIONS (4)
  - CONDITION AGGRAVATED [None]
  - PAIN [None]
  - VAGINAL PROLAPSE [None]
  - VAGINAL ULCERATION [None]
